FAERS Safety Report 4595054-6 (Version None)
Quarter: 2005Q1

REPORT INFORMATION
  Report Type: 
  Country: None (occurrence: None)
  Receive Date: 20050223
  Receipt Date: 20050207
  Transmission Date: 20050727
  Serious: Yes (Hospitalization)
  Sender: FDA-Public Use
  Company Number: J200500558

PATIENT
  Age: 63 Year
  Sex: Male

DRUGS (5)
  1. (MYSLEE)  ZOLPIDEM [Suspect]
     Indication: INSOMNIA
     Dosage: 10 MG, PO
     Route: 048
     Dates: start: 20041201, end: 20050205
  2. LAC B     (BIFIDOBACTERIUM 4) [Concomitant]
  3. PANCREATIN TRIPLE STRENGTH CAP [Concomitant]
  4. SELBEX (TEPRENONE) [Concomitant]
  5. ZYRTEC [Concomitant]

REACTIONS (1)
  - DELIRIUM [None]
